FAERS Safety Report 17142470 (Version 2)
Quarter: 2019Q4

REPORT INFORMATION
  Report Type: Report from Study
  Country: FR (occurrence: FR)
  Receive Date: 20191211
  Receipt Date: 20191227
  Transmission Date: 20200122
  Serious: Yes (Other)
  Sender: FDA-Public Use
  Company Number: FR-PFIZER INC-2019528919

PATIENT
  Weight: 15.6 kg

DRUGS (12)
  1. PEDIAVENT [GUAIFENESIN;SALBUTAMOL SULFATE] [Concomitant]
     Dosage: 1000.0 ML, DAILY
     Dates: start: 20191120, end: 20191122
  2. MITOXANTRONE HCL [Suspect]
     Active Substance: MITOXANTRONE HYDROCHLORIDE
     Indication: ACUTE MYELOID LEUKAEMIA
     Dosage: 12 MG/M2, 1X/DAY, CYCLIC
     Route: 042
     Dates: start: 20191109, end: 20191112
  3. CYTARABINE. [Suspect]
     Active Substance: CYTARABINE
     Indication: ACUTE MYELOID LEUKAEMIA
     Dosage: 68 MG, 2X/DAY, CYCLIC
     Route: 042
     Dates: start: 20191109, end: 20191118
  4. SMOFLIPID [Concomitant]
     Active Substance: FISH OIL\MEDIUM-CHAIN TRIGLYCERIDES\OLIVE OIL\SOYBEAN OIL
     Dosage: 37.5 ML, DAILY
     Dates: start: 20191119, end: 20191121
  5. VORICONAZOLE. [Concomitant]
     Active Substance: VORICONAZOLE
     Dosage: UNK
     Dates: start: 20191130
  6. PARACETAMOL [Concomitant]
     Active Substance: ACETAMINOPHEN
     Dosage: 250.0 MG, 1X/DAY
     Dates: start: 20191117, end: 20191129
  7. VANCOMYCINE [VANCOMYCIN] [Concomitant]
     Active Substance: VANCOMYCIN
     Dosage: UNK
     Dates: start: 20191202
  8. ORACILLINE [PHENOXYMETHYLPENICILLIN] [Concomitant]
     Active Substance: PENICILLIN V
     Dosage: 500X1000 IU DAILY
     Dates: start: 20191121, end: 20191121
  9. GEMTUZUMAB OZOGAMICIN [Suspect]
     Active Substance: GEMTUZUMAB OZOGAMICIN
     Indication: ACUTE MYELOID LEUKAEMIA
     Dosage: 2 MG, CYCLIC
     Route: 042
     Dates: start: 20191112, end: 20191118
  10. TAZOCILLINE [Concomitant]
     Active Substance: PIPERACILLIN SODIUM\TAZOBACTAM SODIUM
     Dosage: 1.2 G, 1X/DAY
     Dates: start: 20191121
  11. ONDANSETRON [Concomitant]
     Active Substance: ONDANSETRON
     Dosage: 4.0 MG, 2X/DAY
     Dates: start: 20191109, end: 20191121
  12. VANCOMYCINE [VANCOMYCIN] [Concomitant]
     Active Substance: VANCOMYCIN
     Dosage: 240.0 MG, DAILY
     Dates: start: 20191122, end: 20191122

REACTIONS (2)
  - Streptococcal infection [Unknown]
  - Febrile neutropenia [Not Recovered/Not Resolved]

NARRATIVE: CASE EVENT DATE: 20191121
